FAERS Safety Report 8699813 (Version 2)
Quarter: 2012Q4

REPORT INFORMATION
  Report Type: 
  Country: GB (occurrence: GB)
  Receive Date: 20120802
  Receipt Date: 20120926
  Transmission Date: 20130627
  Serious: Yes (Life-Threatening, Hospitalization)
  Sender: FDA-Public Use
  Company Number: PHHY2012GB066449

PATIENT
  Age: 53 Year
  Sex: Male

DRUGS (5)
  1. SIMVASTATIN [Suspect]
     Dosage: 40 mg, QD
     Route: 048
     Dates: start: 20110401, end: 20120610
  2. ASPIRIN [Concomitant]
     Dosage: 75 mg, QD
     Route: 048
     Dates: start: 20110401
  3. BISOPROLOL [Concomitant]
     Dosage: 2.5 mg, QD
     Dates: start: 20110401
  4. CLOPIDOGREL [Concomitant]
     Dosage: 75 mg, QD
     Dates: start: 20110401, end: 20120330
  5. RAMIPRIL [Concomitant]
     Dosage: 2.5 mg, QD
     Dates: start: 20110401

REACTIONS (6)
  - Intestinal perforation [Recovering/Resolving]
  - Pancreatitis necrotising [Recovering/Resolving]
  - Renal failure [Recovering/Resolving]
  - Alanine aminotransferase increased [Recovered/Resolved]
  - Blood alkaline phosphatase increased [Unknown]
  - White blood cell count increased [Recovering/Resolving]
